FAERS Safety Report 13577767 (Version 2)
Quarter: 2018Q1

REPORT INFORMATION
  Report Type: Spontaneous
  Country: US (occurrence: US)
  Receive Date: 20170524
  Receipt Date: 20180307
  Transmission Date: 20180508
  Serious: Yes (Other)
  Sender: FDA-Public Use
  Company Number: US-LPDUSPRD-20170688

PATIENT
  Age: 26 Year
  Sex: Male
  Weight: 71 kg

DRUGS (3)
  1. MANNITOL INJECTION, USP (4050-25) [Suspect]
     Active Substance: MANNITOL
     Dosage: 100 GRAMS (1.4 G/KG)
     Route: 042
  2. LEVETIRACETAM. [Concomitant]
     Active Substance: LEVETIRACETAM
     Dosage: 500 MG TWICE DAILY
     Route: 065
  3. ONYX 34 [Concomitant]
     Dosage: DOSE NOT PROVIDED
     Route: 065

REACTIONS (2)
  - Hypoxia [Unknown]
  - Pulmonary oedema [Unknown]
